FAERS Safety Report 4462229-6 (Version None)
Quarter: 2004Q3

REPORT INFORMATION
  Report Type: 
  Country: None (occurrence: None)
  Receive Date: 20040924
  Receipt Date: 20040909
  Transmission Date: 20050211
  Serious: Yes (Hospitalization)
  Sender: FDA-Public Use
  Company Number: 2004232482US

PATIENT
  Age: 48 Year
  Sex: Male

DRUGS (8)
  1. CAMPTOSAR [Suspect]
     Indication: GLIOBLASTOMA MULTIFORME
     Dosage: 312.5 MG, WEEKLY, IV
     Route: 042
     Dates: start: 20040804, end: 20040825
  2. COMPARATOR-THALIDOMIDE (THALIDOMIDE) CAPSULE [Suspect]
     Indication: GLIOBLASTOMA MULTIFORME
     Dosage: 400 MG, QD, ORAL
     Route: 048
     Dates: start: 20040804, end: 20040907
  3. DEPAKOTE [Concomitant]
  4. LEVETIRACETAM [Concomitant]
  5. LORAZEPAM [Concomitant]
  6. DEXAMETHASONE [Concomitant]
  7. THIAMINE HCL [Concomitant]
  8. NEXIUM [Concomitant]

REACTIONS (1)
  - CONVULSION [None]
